FAERS Safety Report 7121045-7 (Version None)
Quarter: 2010Q4

REPORT INFORMATION
  Report Type: 
  Country: None (occurrence: None)
  Receive Date: 20101124
  Receipt Date: 20101116
  Transmission Date: 20110411
  Serious: Yes (Other)
  Sender: FDA-Public Use
  Company Number: BE-NOVOPROD-318604

PATIENT
  Sex: Female

DRUGS (1)
  1. NOVORAPID [Suspect]
     Indication: PRODUCT USED FOR UNKNOWN INDICATION
     Dosage: UNKNOWN

REACTIONS (2)
  - DRUG EXPOSURE DURING PREGNANCY [None]
  - RESPIRATORY FAILURE [None]
